FAERS Safety Report 4463136-5 (Version None)
Quarter: 2004Q3

REPORT INFORMATION
  Report Type: 
  Country: None (occurrence: None)
  Receive Date: 20040930
  Receipt Date: 20040924
  Transmission Date: 20050211
  Serious: Yes (Death)
  Sender: FDA-Public Use
  Company Number: US-JNJFOC-20040908644

PATIENT
  Age: 37 Year
  Sex: Male

DRUGS (5)
  1. RISPERDAL [Suspect]
     Dosage: GRADUALLY INCREASED FROM 1 MG PER DAY BY DAY 10 OF HOSPITAL STAY
     Route: 049
  2. RISPERDAL [Suspect]
     Route: 049
  3. RISPERDAL [Suspect]
     Route: 049
  4. HALDOL [Suspect]
     Dosage: DOSE TAKEN AT BEDTIME
     Route: 049
  5. BENZOTROPINE [Concomitant]

REACTIONS (9)
  - APHASIA [None]
  - DELIRIUM [None]
  - DRUG INTERACTION [None]
  - EXCORIATION [None]
  - NEUROLEPTIC MALIGNANT SYNDROME [None]
  - PERICARDIAL EFFUSION [None]
  - PLEURAL EFFUSION [None]
  - RHABDOMYOLYSIS [None]
  - WHITE BLOOD CELL COUNT INCREASED [None]
